FAERS Safety Report 21992665 (Version 1)
Quarter: 2023Q1

REPORT INFORMATION
  Report Type: Spontaneous
  Country: US (occurrence: US)
  Receive Date: 20230215
  Receipt Date: 20230215
  Transmission Date: 20230418
  Serious: No
  Sender: FDA-Public Use
  Company Number: US-TEVA-2023-US-2852470

PATIENT
  Age: 32 Year
  Sex: Female

DRUGS (1)
  1. ALBUTEROL SULFATE [Suspect]
     Active Substance: ALBUTEROL SULFATE
     Indication: Product used for unknown indication
     Dosage: INHALATION - AEROSOL, 90 MCG
     Route: 065
     Dates: start: 202301

REACTIONS (3)
  - Pharyngeal swelling [Recovered/Resolved]
  - Product taste abnormal [Unknown]
  - Device defective [Unknown]

NARRATIVE: CASE EVENT DATE: 20230101
